FAERS Safety Report 18143983 (Version 1)
Quarter: 2020Q3

REPORT INFORMATION
  Report Type: Spontaneous
  Country: GR (occurrence: GR)
  Receive Date: 20200813
  Receipt Date: 20200813
  Transmission Date: 20201103
  Serious: Yes (Life-Threatening, Hospitalization, Other)
  Sender: FDA-Public Use
  Company Number: GR-ACCORD-195545

PATIENT
  Age: 48 Year
  Sex: Female

DRUGS (1)
  1. TACROLIMUS. [Suspect]
     Active Substance: TACROLIMUS
     Indication: IMMUNOSUPPRESSANT DRUG THERAPY

REACTIONS (3)
  - Thrombotic thrombocytopenic purpura [Recovering/Resolving]
  - Hepatic ischaemia [Recovering/Resolving]
  - Posterior reversible encephalopathy syndrome [Recovering/Resolving]
